FAERS Safety Report 5005982-5 (Version None)
Quarter: 2006Q2

REPORT INFORMATION
  Report Type: 
  Country: None (occurrence: None)
  Receive Date: 20060517
  Receipt Date: 20060517
  Transmission Date: 20061013
  Serious: No
  Sender: FDA-Public Use
  Company Number: None

PATIENT
  Age: 37 Year
  Sex: Female
  Weight: 93.8946 kg

DRUGS (1)
  1. CYMBALTA [Suspect]
     Indication: FIBROMYALGIA
     Dosage: 60 MG   ONCE A DAY   PO
     Route: 048
     Dates: start: 20051217, end: 20051231

REACTIONS (13)
  - ANOREXIA [None]
  - DIZZINESS [None]
  - DRUG DOSE OMISSION [None]
  - FATIGUE [None]
  - FEELING COLD [None]
  - HYPERHIDROSIS [None]
  - HYPERSOMNIA [None]
  - INCOHERENT [None]
  - INFLUENZA LIKE ILLNESS [None]
  - MALAISE [None]
  - NAUSEA [None]
  - PYREXIA [None]
  - VOMITING [None]
